FAERS Safety Report 16023861 (Version 1)
Quarter: 2019Q1

REPORT INFORMATION
  Report Type: Spontaneous
  Country: US (occurrence: US)
  Receive Date: 20190301
  Receipt Date: 20190301
  Transmission Date: 20190418
  Serious: Yes (Hospitalization)
  Sender: FDA-Public Use
  Company Number: US-VERTEX PHARMACEUTICALS-2019-001574

PATIENT
  Age: 27 Year
  Sex: Male

DRUGS (23)
  1. HYDROXYZINE [Concomitant]
     Active Substance: HYDROXYZINE HYDROCHLORIDE
  2. CREON [Concomitant]
     Active Substance: PANCRELIPASE AMYLASE\PANCRELIPASE LIPASE\PANCRELIPASE PROTEASE
  3. ALBUTEROL                          /00139501/ [Concomitant]
     Active Substance: ALBUTEROL
  4. CULTURELLE [Concomitant]
     Active Substance: LACTOBACILLUS RHAMNOSUS
  5. XOPENEX [Concomitant]
     Active Substance: LEVALBUTEROL HYDROCHLORIDE
  6. SEROQUEL [Concomitant]
     Active Substance: QUETIAPINE FUMARATE
  7. NOVOLIN R [Concomitant]
     Active Substance: INSULIN HUMAN
  8. ALLEGRA-D [Concomitant]
     Active Substance: FEXOFENADINE\PSEUDOEPHEDRINE
  9. PHENAZOPYRIDINE. [Concomitant]
     Active Substance: PHENAZOPYRIDINE
  10. TESTOSTERONE. [Concomitant]
     Active Substance: TESTOSTERONE
  11. SYMDEKO [Suspect]
     Active Substance: IVACAFTOR\TEZACAFTOR
     Indication: CYSTIC FIBROSIS
     Dosage: TEZACAFTOR 100 MG, IVACAFTOR 150 MG (YELLOW TABLET) QAM; IVACAFTOR 150 MG (BLUE TABLET) QPM
     Route: 048
     Dates: start: 201803
  12. DIPHENOXYLATE [Concomitant]
     Active Substance: DIPHENOXYLATE
  13. DULERA [Concomitant]
     Active Substance: FORMOTEROL FUMARATE DIHYDRATE\MOMETASONE FUROATE
  14. PULMOZYME [Concomitant]
     Active Substance: DORNASE ALFA
  15. GABAPENTIN. [Concomitant]
     Active Substance: GABAPENTIN
  16. DULOXETINE. [Concomitant]
     Active Substance: DULOXETINE
  17. ZOLPIDEM [Concomitant]
     Active Substance: ZOLPIDEM\ZOLPIDEM TARTRATE
  18. LORAZEPAM. [Concomitant]
     Active Substance: LORAZEPAM
  19. CAYSTON [Concomitant]
     Active Substance: AZTREONAM
  20. METOPROLOL. [Concomitant]
     Active Substance: METOPROLOL
  21. OMEPRAZOLE. [Concomitant]
     Active Substance: OMEPRAZOLE
  22. LOPERAMIDE [Concomitant]
     Active Substance: LOPERAMIDE
  23. TOBI [Concomitant]
     Active Substance: TOBRAMYCIN

REACTIONS (1)
  - Infective pulmonary exacerbation of cystic fibrosis [Unknown]

NARRATIVE: CASE EVENT DATE: 20190215
